FAERS Safety Report 9836701 (Version 1)
Quarter: 2014Q1

REPORT INFORMATION
  Report Type: Spontaneous
  Country: AU (occurrence: AU)
  Receive Date: 20140123
  Receipt Date: 20140123
  Transmission Date: 20141002
  Serious: Yes (Other)
  Sender: FDA-Public Use
  Company Number: PHHY2014AU004349

PATIENT
  Sex: Male

DRUGS (12)
  1. METOPROLOL [Suspect]
     Dosage: 50 MG, UNK
  2. ISOSORBIDE MONONITRATE [Suspect]
     Dosage: 30 MG, QD
  3. ISOSORBIDE MONONITRATE [Suspect]
     Dosage: 30 MG, QD
  4. AMLODIPINE [Suspect]
     Dosage: 5 MG, UNK
  5. FUROSEMIDE [Suspect]
     Dosage: 20 MG, UNK
  6. CLOPIDOGREL [Suspect]
  7. PERINDOPRIL [Suspect]
     Dosage: 8 MG, UNK
  8. PERINDOPRIL APO [Suspect]
     Dosage: 8 MG, UNK
  9. XALATAN [Concomitant]
  10. NITROLINGUAL-SPRAY [Concomitant]
  11. ASTRIX [Concomitant]
     Dosage: 100 MG, UNK
  12. ASPIRIN [Concomitant]
     Dosage: 100 MG, UNK

REACTIONS (7)
  - Orthostatic hypotension [Unknown]
  - Syncope [Unknown]
  - General physical health deterioration [Unknown]
  - Lethargy [Unknown]
  - Feeling abnormal [Unknown]
  - Somnolence [Unknown]
  - Skin discolouration [Unknown]
